FAERS Safety Report 13643861 (Version 1)
Quarter: 2017Q2

REPORT INFORMATION
  Report Type: Spontaneous
  Country: RU (occurrence: RU)
  Receive Date: 20170612
  Receipt Date: 20170612
  Transmission Date: 20170830
  Serious: Yes (Hospitalization, Other)
  Sender: FDA-Public Use
  Company Number: RU-JNJFOC-20170608102

PATIENT
  Age: 84 Year
  Sex: Female

DRUGS (6)
  1. THROMBO ASS [Concomitant]
     Active Substance: ASPIRIN
     Route: 065
  2. XARELTO [Suspect]
     Active Substance: RIVAROXABAN
     Indication: CEREBROVASCULAR ACCIDENT PROPHYLAXIS
     Route: 048
  3. PHYSIOTENS [Concomitant]
     Active Substance: MOXONIDINE
     Route: 065
  4. ENALAPRIL [Concomitant]
     Active Substance: ENALAPRIL
     Route: 065
  5. XARELTO [Suspect]
     Active Substance: RIVAROXABAN
     Indication: CEREBROVASCULAR ACCIDENT PROPHYLAXIS
     Route: 048
  6. VEROSPIRON [Concomitant]
     Active Substance: SPIRONOLACTONE
     Route: 065

REACTIONS (6)
  - Asthenia [Not Recovered/Not Resolved]
  - Vestibular ischaemia [Recovered/Resolved]
  - Nausea [Recovered/Resolved]
  - Retinal vein thrombosis [Not Recovered/Not Resolved]
  - Dizziness [Recovered/Resolved]
  - Cerebral infarction [Recovered/Resolved]
